FAERS Safety Report 4522193-8 (Version None)
Quarter: 2004Q4

REPORT INFORMATION
  Report Type: 
  Country: None (occurrence: None)
  Receive Date: 20041207
  Receipt Date: 20041123
  Transmission Date: 20050328
  Serious: Yes (Death)
  Sender: FDA-Public Use
  Company Number: 210655

PATIENT
  Age: 65 Year
  Sex: Male

DRUGS (5)
  1. RITUXAN [Suspect]
     Indication: NON-HODGKIN'S LYMPHOMA
     Dosage: 375 MG/M2, Q3W
     Dates: end: 20001001
  2. CYCLOPHOSPHAMIDE [Concomitant]
  3. VINCRISTINE [Concomitant]
  4. DOXORUBICIN (DOXORUBICIN HYDROCHLORIDE, DOXORUBICIN) [Concomitant]
  5. PREDNISONE [Concomitant]

REACTIONS (22)
  - ALKALOSIS [None]
  - CARDIAC ARREST [None]
  - CLUBBING [None]
  - DERMATITIS [None]
  - DRUG HYPERSENSITIVITY [None]
  - EOSINOPHIL COUNT INCREASED [None]
  - FEBRILE NEUTROPENIA [None]
  - HYPERVENTILATION [None]
  - HYPOTHYROIDISM [None]
  - HYPOXIA [None]
  - INFECTION [None]
  - LUNG DISORDER [None]
  - MULTI-ORGAN FAILURE [None]
  - ORGAN FAILURE [None]
  - PNEUMONIA [None]
  - PNEUMONITIS [None]
  - PRURITUS [None]
  - PULMONARY ALVEOLAR HAEMORRHAGE [None]
  - PURPURA [None]
  - RASH MACULAR [None]
  - SHOCK [None]
  - STAPHYLOCOCCAL BACTERAEMIA [None]
